FAERS Safety Report 5229028-9 (Version None)
Quarter: 2007Q1

REPORT INFORMATION
  Report Type: 
  Country: None (occurrence: None)
  Receive Date: 20061201
  Receipt Date: 20051128
  Transmission Date: 20070707
  Serious: Yes (Hospitalization)
  Sender: FDA-Public Use
  Company Number: 2005-135063-NL

PATIENT
  Age: 22 Year
  Sex: Female
  Weight: 68.2 kg

DRUGS (1)
  1. NUVARING [Suspect]
     Indication: CONTRACEPTION
     Dosage: VAGINAL
     Route: 067
     Dates: start: 20050930, end: 20051016

REACTIONS (1)
  - PULMONARY EMBOLISM [None]
